FAERS Safety Report 9288636 (Version 1)
Quarter: 2012Q4

REPORT INFORMATION
  Report Type: Spontaneous
  Country: CA (occurrence: None)
  Receive Date: 20120912
  Receipt Date: 20120912
  Transmission Date: 20130627
  Serious: Yes (Other)
  Sender: FDA-Public Use
  Company Number: 215234

PATIENT
  Age: 7 Year
  Sex: Female

DRUGS (1)
  1. INNOHEP [Suspect]
     Indication: DRUG USE FOR UNKNOWN INDICATION
     Route: 058

REACTIONS (3)
  - Dermatitis [None]
  - Skin necrosis [None]
  - Arterial thrombosis [None]
